FAERS Safety Report 7179496-0 (Version None)
Quarter: 2010Q4

REPORT INFORMATION
  Report Type: 
  Country: None (occurrence: None)
  Receive Date: 20101221
  Receipt Date: 20101214
  Transmission Date: 20110411
  Serious: Yes (Hospitalization)
  Sender: FDA-Public Use
  Company Number: DE-ALLERGAN-1016293US

PATIENT
  Age: 71 Year
  Sex: Male

DRUGS (7)
  1. OZURDEX [Suspect]
     Indication: RETINAL VEIN OCCLUSION
     Dosage: UNK
     Route: 031
     Dates: start: 20101101, end: 20101101
  2. ASS [Concomitant]
     Indication: PRODUCT USED FOR UNKNOWN INDICATION
     Dosage: 100 MG, QD
     Route: 048
  3. DEXAMYTREX [Concomitant]
  4. BORO-SCOPOL [Concomitant]
  5. VIGAMOX [Concomitant]
  6. DECORTIN [Concomitant]
     Indication: PRODUCT USED FOR UNKNOWN INDICATION
     Dosage: 120 MG
  7. CEFTAZIDIME (FORTAZ) [Concomitant]
     Indication: PRODUCT USED FOR UNKNOWN INDICATION
     Dosage: 1000 MG, UNK
     Route: 048

REACTIONS (2)
  - ENDOPHTHALMITIS [None]
  - RETINAL TEAR [None]
